FAERS Safety Report 8797266 (Version 2)
Quarter: 2015Q1

REPORT INFORMATION
  Report Type: Report from Study
  Country: US (occurrence: US)
  Receive Date: 20120919
  Receipt Date: 20150303
  Transmission Date: 20150721
  Serious: Yes (Death)
  Sender: FDA-Public Use
  Company Number: US-ROCHE-1104424

PATIENT
  Sex: Male

DRUGS (19)
  1. AVASTIN [Suspect]
     Active Substance: BEVACIZUMAB
     Indication: LYMPHOMA
  2. DEXAMETHASONE. [Concomitant]
     Active Substance: DEXAMETHASONE
     Route: 042
  3. DEXAMETHASONE. [Concomitant]
     Active Substance: DEXAMETHASONE
     Dosage: DAY 2 TO DAY 4
     Route: 048
  4. AVASTIN [Suspect]
     Active Substance: BEVACIZUMAB
     Indication: OESOPHAGEAL CARCINOMA
     Route: 042
     Dates: start: 20081201, end: 20090112
  5. AVASTIN [Suspect]
     Active Substance: BEVACIZUMAB
     Indication: METASTASES TO THE MEDIASTINUM
  6. MGSO4 [Concomitant]
     Active Substance: MAGNESIUM SULFATE
     Dosage: 1 G/L
     Route: 065
  7. XELODA [Suspect]
     Active Substance: CAPECITABINE
     Indication: PRODUCT USED FOR UNKNOWN INDICATION
     Route: 048
  8. NEULASTA [Concomitant]
     Active Substance: PEGFILGRASTIM
     Route: 058
  9. NACL .9% [Concomitant]
     Route: 065
  10. MANNITOL. [Concomitant]
     Active Substance: MANNITOL
     Dosage: 25 G/L
     Route: 065
  11. KCL CORRECTIVE [Concomitant]
     Route: 065
  12. CISPLATIN. [Concomitant]
     Active Substance: CISPLATIN
     Route: 042
  13. APREPITANT. [Concomitant]
     Active Substance: APREPITANT
     Route: 048
  14. APREPITANT. [Concomitant]
     Active Substance: APREPITANT
     Route: 048
  15. CIPROFLOXACIN. [Concomitant]
     Active Substance: CIPROFLOXACIN
     Route: 065
  16. TAXOTERE [Concomitant]
     Active Substance: DOCETAXEL
     Route: 042
  17. PALONOSETRON [Concomitant]
     Active Substance: PALONOSETRON
     Route: 042
  18. DOCETAXEL. [Concomitant]
     Active Substance: DOCETAXEL
     Route: 042
  19. PROCHLORPERAZINE. [Concomitant]
     Active Substance: PROCHLORPERAZINE
     Route: 048

REACTIONS (2)
  - Off label use [Unknown]
  - Death [Fatal]
